FAERS Safety Report 12912560 (Version 3)
Quarter: 2017Q1

REPORT INFORMATION
  Report Type: Spontaneous
  Country: US (occurrence: US)
  Receive Date: 20161104
  Receipt Date: 20170223
  Transmission Date: 20170428
  Serious: Yes (Other)
  Sender: FDA-Public Use
  Company Number: US-PFIZER INC-2016510791

PATIENT
  Age: 66 Year
  Sex: Female
  Weight: 76.19 kg

DRUGS (3)
  1. IBRANCE [Suspect]
     Active Substance: PALBOCICLIB
     Dosage: 125 MG, CYCLIC (1 D - 21 D Q 28 D)
     Route: 048
     Dates: start: 20161020, end: 20170215
  2. IBRANCE [Suspect]
     Active Substance: PALBOCICLIB
     Dosage: 125 MG, CYCLIC (D 1-21 Q 28 DAYS)
     Route: 048
     Dates: start: 20161020
  3. IBRANCE [Suspect]
     Active Substance: PALBOCICLIB
     Indication: BREAST CANCER METASTATIC
     Dosage: 125 MG, CYCLIC (D 1-21 Q 28 DAYS)
     Route: 048
     Dates: start: 20161020

REACTIONS (8)
  - Vomiting [Unknown]
  - Pain in extremity [Unknown]
  - Neoplasm progression [Unknown]
  - Cough [Unknown]
  - Blindness unilateral [Unknown]
  - Headache [Unknown]
  - Nausea [Unknown]
  - Nasopharyngitis [Unknown]

NARRATIVE: CASE EVENT DATE: 201610
